FAERS Safety Report 5909468-2 (Version None)
Quarter: 2008Q4

REPORT INFORMATION
  Report Type: 
  Country: None (occurrence: None)
  Receive Date: 20081006
  Receipt Date: 20080921
  Transmission Date: 20090506
  Serious: Yes (Hospitalization, Other)
  Sender: FDA-Public Use
  Company Number: FR-PFIZER INC-2008083176

PATIENT
  Sex: Female

DRUGS (2)
  1. DOSTINEX [Suspect]
     Indication: PITUITARY TUMOUR BENIGN
  2. LYRICA [Suspect]
     Indication: NEURALGIA
     Dates: start: 20080701

REACTIONS (3)
  - BURNING SENSATION [None]
  - PAIN [None]
  - PARAESTHESIA [None]
